FAERS Safety Report 13772704 (Version 3)
Quarter: 2017Q3

REPORT INFORMATION
  Report Type: Spontaneous
  Country: NL (occurrence: NL)
  Receive Date: 20170720
  Receipt Date: 20170829
  Transmission Date: 20171127
  Serious: Yes (Death, Other)
  Sender: FDA-Public Use
  Company Number: NL-TOLMAR, INC.-2017NL009341

PATIENT
  Sex: Male

DRUGS (2)
  1. ELIGARD [Suspect]
     Active Substance: LEUPROLIDE ACETATE
     Indication: PROSTATE CANCER
     Dosage: 45 MG, PER 6 MONTHS 1 PIECE
     Route: 058
     Dates: start: 20160803
  2. ELIGARD [Suspect]
     Active Substance: LEUPROLIDE ACETATE
     Dosage: 45 MG, PER 6 MONTHS 1 PIECE
     Route: 058
     Dates: start: 20170207

REACTIONS (1)
  - Death [Fatal]
